FAERS Safety Report 16625289 (Version 1)
Quarter: 2019Q3

REPORT INFORMATION
  Report Type: Spontaneous
  Country: US (occurrence: US)
  Receive Date: 20190724
  Receipt Date: 20190724
  Transmission Date: 20191004
  Serious: Yes (Life-Threatening, Hospitalization)
  Sender: FDA-Public Use
  Company Number: US-AMREGENT-20191530

PATIENT
  Age: 66 Year
  Sex: Male
  Weight: 73 kg

DRUGS (3)
  1. VENOFER [Suspect]
     Active Substance: IRON SUCROSE
     Dosage: FIRST DOSE (100 MG,Q TREATMENT
     Route: 040
     Dates: start: 20190427
  2. HECTOROL [Concomitant]
     Active Substance: DOXERCALCIFEROL
     Dosage: 1 MG
     Route: 040
  3. MIRCERA [Suspect]
     Active Substance: METHOXY POLYETHYLENE GLYCOL-EPOETIN BETA
     Dosage: FIRST DOSE (75 MCG 1 IN 2 WK)
     Route: 040
     Dates: start: 20190427

REACTIONS (2)
  - Drug hypersensitivity [Unknown]
  - Stent placement [Unknown]

NARRATIVE: CASE EVENT DATE: 2019
